FAERS Safety Report 24717421 (Version 2)
Quarter: 2024Q4

REPORT INFORMATION
  Report Type: Report from Study
  Country: JP (occurrence: JP)
  Receive Date: 20241210
  Receipt Date: 20241227
  Transmission Date: 20250114
  Serious: Yes (Other)
  Sender: RECORDATI
  Company Number: JP-RECORDATI RARE DISEASE INC.-2024009631

PATIENT

DRUGS (3)
  1. NEOPROFEN [Suspect]
     Active Substance: IBUPROFEN LYSINE
     Indication: Patent ductus arteriosus
     Dosage: 10 MILLIGRAM/KILOGRAM
     Route: 042
     Dates: start: 20230601, end: 20230601
  2. NEOPROFEN [Suspect]
     Active Substance: IBUPROFEN LYSINE
     Dosage: 5 MILLIGRAM/KILOGRAM
     Route: 042
     Dates: start: 20230602, end: 20230602
  3. NEOPROFEN [Suspect]
     Active Substance: IBUPROFEN LYSINE
     Dosage: 5 MILLIGRAM/KILOGRAM
     Route: 042
     Dates: start: 20230603, end: 20230603

REACTIONS (3)
  - Blood sodium decreased [Recovered/Resolved]
  - Hyperkalaemia [Recovered/Resolved]
  - Retinopathy of prematurity [Recovering/Resolving]

NARRATIVE: CASE EVENT DATE: 20230602
